FAERS Safety Report 7458630-9 (Version None)
Quarter: 2011Q2

REPORT INFORMATION
  Report Type: 
  Country: None (occurrence: None)
  Receive Date: 20110504
  Receipt Date: 20110429
  Transmission Date: 20111010
  Serious: Yes (Other)
  Sender: FDA-Public Use
  Company Number: CA-PFIZER INC-2010169021

PATIENT
  Age: 47 Year
  Sex: Male
  Weight: 90 kg

DRUGS (14)
  1. FLEXERIL [Concomitant]
     Indication: MUSCLE SPASMS
     Dosage: 10 MG, HS
  2. CITALOPRAM [Concomitant]
     Indication: DEPRESSION
     Dosage: 40 MG, 1X/DAY
  3. CLONIDINE [Concomitant]
     Indication: BLOOD PRESSURE
     Dosage: 100 UG, 3X/DAY
  4. NABILONE [Concomitant]
     Indication: MYALGIA
     Dosage: 1 MG, UNK
     Dates: start: 20100601
  5. CLONAZEPAM [Concomitant]
     Indication: ANXIETY
     Dosage: 2 MG, 4X/DAY
  6. METHADONE [Concomitant]
     Indication: DRUG DEPENDENCE
     Dosage: 220 MG, (2X 110MG)
  7. GABAPENTIN [Concomitant]
     Indication: NEURALGIA
     Dosage: 400 MG, 2X/DAY
  8. PROCYCLIDINE [Concomitant]
     Indication: ANTICHOLINERGIC SYNDROME
     Dosage: 5 MG, 2X/DAY
  9. FIORINAL-C [Concomitant]
     Indication: MIGRAINE
     Dosage: 4X/DAY
     Dates: start: 20101001
  10. BUPROPION [Concomitant]
     Indication: DEPRESSION
     Dosage: 100 MG, 2X/DAY
  11. LOXAPINE [Concomitant]
     Indication: PSYCHOTIC DISORDER
     Dosage: 25 MG, 4X/DAY
  12. RELPAX [Suspect]
     Indication: MIGRAINE
     Dosage: 20 MG (ONE FOR MIGRAINE AND REPEAT ONLY AS NEEDED)
     Route: 048
     Dates: start: 20101111
  13. CLONIDINE [Concomitant]
     Indication: HYPERHIDROSIS
  14. CLONAZEPAM [Concomitant]
     Indication: SCHIZOPHRENIA

REACTIONS (1)
  - GRAND MAL CONVULSION [None]
